FAERS Safety Report 6263576-8 (Version None)
Quarter: 2009Q3

REPORT INFORMATION
  Report Type: 
  Country: None (occurrence: None)
  Receive Date: 20090710
  Receipt Date: 20090506
  Transmission Date: 20100115
  Serious: No
  Sender: FDA-Public Use
  Company Number: A0782795A

PATIENT
  Age: 56 Year
  Sex: Female

DRUGS (7)
  1. TYKERB [Suspect]
     Indication: BREAST CANCER
     Dosage: 250MG PER DAY
     Route: 048
     Dates: start: 20090101
  2. XELODA [Concomitant]
  3. ZESTORETIC [Concomitant]
  4. PROTONIX [Concomitant]
  5. LORA TAB [Concomitant]
  6. SENOKOT [Concomitant]
  7. MIRALAX [Concomitant]

REACTIONS (2)
  - ABDOMINAL PAIN UPPER [None]
  - NAUSEA [None]
